FAERS Safety Report 6028506-2 (Version None)
Quarter: 2009Q1

REPORT INFORMATION
  Report Type: 
  Country: None (occurrence: None)
  Receive Date: 20090102
  Receipt Date: 20081219
  Transmission Date: 20090719
  Serious: Yes (Hospitalization)
  Sender: FDA-Public Use
  Company Number: 005276

PATIENT
  Age: 77 Year
  Sex: Male

DRUGS (9)
  1. PLETAL [Suspect]
     Indication: ARTERIOSCLEROSIS OBLITERANS
     Dosage: 100 MG, BID
     Route: 048
  2. DIOVAN [Concomitant]
  3. DOXAZOSIN MESYLATE [Concomitant]
  4. NATRIX (INDAPAMIDE) [Concomitant]
  5. PRAVASTATIN [Concomitant]
  6. BISOPROLOL FUMARATE [Concomitant]
  7. ALLOPURINOL [Concomitant]
  8. GLYBURIDE [Concomitant]
  9. BASEN (VOGLIBOSE) [Concomitant]

REACTIONS (2)
  - FAECES DISCOLOURED [None]
  - MELAENA [None]
